FAERS Safety Report 5492269-X (Version None)
Quarter: 2007Q4

REPORT INFORMATION
  Report Type: 
  Country: None (occurrence: None)
  Receive Date: 20071015
  Receipt Date: 20070711
  Transmission Date: 20080405
  Serious: No
  Sender: FDA-Public Use
  Company Number: 2007SP002528

PATIENT
  Age: 59 Year
  Sex: Female
  Weight: 61.2356 kg

DRUGS (2)
  1. LUNESTA [Suspect]
     Indication: INSOMNIA
     Dosage: 3 MG;  ORAL
     Route: 048
     Dates: start: 20070702, end: 20070701
  2. TYLENOL W/ CODEINE NO. 3 [Concomitant]

REACTIONS (9)
  - ASTHENOPIA [None]
  - DYSGEUSIA [None]
  - GAIT DISTURBANCE [None]
  - HEADACHE [None]
  - JOINT STIFFNESS [None]
  - LOSS OF CONSCIOUSNESS [None]
  - MYALGIA [None]
  - NAUSEA [None]
  - WEIGHT DECREASED [None]
